FAERS Safety Report 25519329 (Version 2)
Quarter: 2025Q3

REPORT INFORMATION
  Report Type: Spontaneous
  Country: US (occurrence: US)
  Receive Date: 20250704
  Receipt Date: 20250709
  Transmission Date: 20251021
  Serious: Yes (Hospitalization, Other)
  Sender: SANOFI AVENTIS
  Company Number: US-MLMSERVICE-20250626-PI556779-00232-2

PATIENT
  Age: 25 Year
  Sex: Male

DRUGS (6)
  1. PREDNISONE [Suspect]
     Active Substance: PREDNISONE
     Indication: End stage renal disease
  2. ANTI-THYMOCYTE GLOBULIN (RABBIT) NOS [Suspect]
     Active Substance: LAPINE T-LYMPHOCYTE IMMUNE GLOBULIN
     Indication: Transplant rejection
  3. BASILIXIMAB [Suspect]
     Active Substance: BASILIXIMAB
     Indication: End stage renal disease
  4. METHYLPREDNISOLONE [Suspect]
     Active Substance: METHYLPREDNISOLONE
     Indication: End stage renal disease
  5. MYCOPHENOLATE MOFETIL [Suspect]
     Active Substance: MYCOPHENOLATE MOFETIL
     Indication: End stage renal disease
  6. TACROLIMUS [Suspect]
     Active Substance: TACROLIMUS
     Indication: End stage renal disease

REACTIONS (8)
  - Malacoplakia [Recovering/Resolving]
  - Mass [Recovering/Resolving]
  - Hydronephrosis [Recovering/Resolving]
  - Enterococcal infection [Recovering/Resolving]
  - Orchitis [Recovering/Resolving]
  - Escherichia infection [Recovering/Resolving]
  - Purulence [Recovering/Resolving]
  - Abdominal wall abscess [Recovering/Resolving]
